FAERS Safety Report 18495255 (Version 1)
Quarter: 2020Q4

REPORT INFORMATION
  Report Type: Spontaneous
  Country: DE (occurrence: DE)
  Receive Date: 20201112
  Receipt Date: 20201112
  Transmission Date: 20210114
  Serious: Yes (Other)
  Sender: FDA-Public Use
  Company Number: DE-AUROBINDO-AUR-APL-2020-055861

PATIENT
  Age: 7 Year
  Sex: Male
  Weight: 27.5 kg

DRUGS (14)
  1. ORFIRIL LONG [Suspect]
     Active Substance: VALPROIC ACID
     Indication: PETIT MAL EPILEPSY
     Dosage: 600 MILLIGRAM, ONCE A DAY (2 - 0 - 2 CAPSULES DAILY (33.7 MG/KG))
     Route: 065
     Dates: end: 201706
  2. PETNIDAN [Suspect]
     Active Substance: ETHOSUXIMIDE
     Dosage: 500 MILLIGRAM, ONCE A DAY (50 MG/ML: 10 ML DAILY)
     Route: 065
     Dates: start: 2000
  3. LEVETIRACETAM. [Suspect]
     Active Substance: LEVETIRACETAM
     Indication: EPILEPSY WITH MYOCLONIC-ATONIC SEIZURES
     Dosage: UNK
     Route: 065
     Dates: end: 2015
  4. ORFIRIL LONG [Suspect]
     Active Substance: VALPROIC ACID
     Indication: EPILEPSY WITH MYOCLONIC-ATONIC SEIZURES
     Dosage: 675 MILLIGRAM, ONCE A DAY (2 - 0 - 2.5 CAPSULES DAILY (26.9 MG/KG TO 38 MG/KG))
     Route: 065
     Dates: start: 201706, end: 20200610
  5. LAMOTRIGINE. [Suspect]
     Active Substance: LAMOTRIGINE
     Indication: EPILEPSY WITH MYOCLONIC-ATONIC SEIZURES
  6. LAMOTRIGINE. [Suspect]
     Active Substance: LAMOTRIGINE
     Indication: PETIT MAL EPILEPSY
     Dosage: UNK
     Route: 065
     Dates: end: 2018
  7. PETNIDAN [Suspect]
     Active Substance: ETHOSUXIMIDE
     Indication: PETIT MAL EPILEPSY
     Dosage: 375 MILLIGRAM, ONCE A DAY (50 MG/ML: 2.5 - 1.5 - 2.5 ML DAILY (12.4 MG/KG))
     Route: 065
     Dates: start: 20200602
  8. PETNIDAN [Suspect]
     Active Substance: ETHOSUXIMIDE
     Indication: EPILEPSY WITH MYOCLONIC-ATONIC SEIZURES
     Dosage: 450 MILLIGRAM, ONCE A DAY (50 MG/ML: 3.5 - 2 - 3.5 ML DAILY)
     Route: 065
     Dates: start: 2000
  9. PETNIDAN [Suspect]
     Active Substance: ETHOSUXIMIDE
     Dosage: 425 MILLIGRAM, ONCE A DAY (50 MG/ML: 3 - 2.5 - 3 ML DAILY)
     Route: 065
     Dates: start: 2000
  10. CLOBAZAM. [Suspect]
     Active Substance: CLOBAZAM
     Indication: PETIT MAL EPILEPSY
  11. ORFIRIL [Suspect]
     Active Substance: VALPROATE SODIUM
     Indication: EPILEPSY WITH MYOCLONIC-ATONIC SEIZURES
     Dosage: UNK
     Route: 065
  12. PETNIDAN [Suspect]
     Active Substance: ETHOSUXIMIDE
     Dosage: 400 MILLIGRAM, ONCE A DAY (50 MG/ML: 3 - 2 - 3 ML DAILY (22.4 MG/KG))
     Route: 065
  13. CLOBAZAM. [Suspect]
     Active Substance: CLOBAZAM
     Indication: EPILEPSY WITH MYOCLONIC-ATONIC SEIZURES
     Dosage: UNK
     Route: 065
     Dates: end: 201912
  14. ORFIRIL LONG [Suspect]
     Active Substance: VALPROIC ACID
     Dosage: 825 MILLIGRAM, ONCE A DAY (2 .5- 0 - 3 CAPSULES DAILY (31.5 MG/KG))
     Route: 065
     Dates: start: 20200611

REACTIONS (20)
  - Behaviour disorder [Unknown]
  - Social fear [Unknown]
  - Epilepsy [Not Recovered/Not Resolved]
  - Ataxia [Recovered/Resolved]
  - Anger [Unknown]
  - Pain in extremity [Recovering/Resolving]
  - Restlessness [Unknown]
  - Muscle twitching [Recovered/Resolved]
  - Disturbance in attention [Unknown]
  - Insomnia [Unknown]
  - Fatigue [Unknown]
  - Drug ineffective [Unknown]
  - Sleep disorder [Unknown]
  - Psychomotor hyperactivity [Not Recovered/Not Resolved]
  - Seizure [Not Recovered/Not Resolved]
  - Aggression [Unknown]
  - Developmental delay [Recovering/Resolving]
  - Headache [Recovered/Resolved]
  - Aphasia [Recovered/Resolved]
  - Disturbance in attention [Not Recovered/Not Resolved]
